FAERS Safety Report 23963050 (Version 1)
Quarter: 2024Q2

REPORT INFORMATION
  Report Type: Spontaneous
  Country: FR (occurrence: FR)
  Receive Date: 20240611
  Receipt Date: 20240611
  Transmission Date: 20240715
  Serious: Yes (Hospitalization)
  Sender: FDA-Public Use
  Company Number: None

PATIENT
  Age: 76 Year
  Sex: Male
  Weight: 110 kg

DRUGS (3)
  1. ACYCLOVIR [Suspect]
     Active Substance: ACYCLOVIR
     Indication: Herpes simplex
     Route: 042
     Dates: start: 20240202, end: 20240208
  2. CLINDAMYCIN [Suspect]
     Active Substance: CLINDAMYCIN
     Indication: Infection
     Route: 042
     Dates: start: 20240202, end: 20240212
  3. FLUINDIONE [Suspect]
     Active Substance: FLUINDIONE
     Indication: Mitral valve repair
     Dosage: PREVISCAN  SCORED TABLET
     Route: 048
     Dates: start: 20240108, end: 20240122

REACTIONS (2)
  - Rectal haemorrhage [Recovered/Resolved]
  - Anaemia [Recovered/Resolved]

NARRATIVE: CASE EVENT DATE: 20240122
